FAERS Safety Report 4487725-7 (Version None)
Quarter: 2004Q4

REPORT INFORMATION
  Report Type: 
  Country: None (occurrence: None)
  Receive Date: 20041027
  Receipt Date: 20041027
  Transmission Date: 20050328
  Serious: Yes (Hospitalization)
  Sender: FDA-Public Use
  Company Number: None

PATIENT
  Age: 76 Year
  Sex: Male
  Weight: 81.1939 kg

DRUGS (5)
  1. ASPIRIN [Suspect]
     Dosage: 81 QD
     Route: 048
  2. LISINOPRIL [Concomitant]
  3. BEXTRA [Concomitant]
  4. ADALAT [Concomitant]
  5. TERAZOSIN HCL [Concomitant]

REACTIONS (3)
  - GASTRIC ULCER [None]
  - MELAENA [None]
  - REFLUX OESOPHAGITIS [None]
